FAERS Safety Report 14943238 (Version 3)
Quarter: 2018Q2

REPORT INFORMATION
  Report Type: Report from Study
  Country: None (occurrence: US)
  Receive Date: 20180528
  Receipt Date: 20180608
  Transmission Date: 20180711
  Serious: Yes (Death, Hospitalization)
  Sender: FDA-Public Use
  Company Number: US-ABBVIE-18K-163-2368371-00

PATIENT
  Age: 59 Year
  Sex: Male

DRUGS (2)
  1. DIGOXIN. [Suspect]
     Active Substance: DIGOXIN
     Indication: PRODUCT USED FOR UNKNOWN INDICATION
     Route: 065
  2. HUMIRA [Suspect]
     Active Substance: ADALIMUMAB
     Indication: PSORIATIC ARTHROPATHY
     Route: 058
     Dates: start: 20180111, end: 2018

REACTIONS (3)
  - Cardioactive drug level increased [Unknown]
  - Cardiac failure [Recovering/Resolving]
  - Death [Fatal]

NARRATIVE: CASE EVENT DATE: 2018
